FAERS Safety Report 11632050 (Version 1)
Quarter: 2015Q4

REPORT INFORMATION
  Report Type: Spontaneous
  Country: US (occurrence: None)
  Receive Date: 20151014
  Receipt Date: 20151014
  Transmission Date: 20160304
  Serious: Yes (Other)
  Sender: FDA-Public Use
  Company Number: None

PATIENT
  Age: 88 Year
  Sex: Female

DRUGS (13)
  1. ALLEGRA 2 PROBIOTIC [Concomitant]
  2. FLONASE [Suspect]
     Active Substance: FLUTICASONE PROPIONATE
     Indication: SINUS DISORDER
     Dosage: 2 ONCE DAILY INHALED
     Route: 055
     Dates: start: 2000, end: 201507
  3. RED RICE YEAST [Suspect]
     Active Substance: DIETARY SUPPLEMENT
  4. VITAMIN C [Concomitant]
     Active Substance: ASCORBIC ACID
  5. AMLODIPINE [Concomitant]
     Active Substance: AMLODIPINE BESYLATE
  6. FLONASE [Suspect]
     Active Substance: FLUTICASONE PROPIONATE
     Indication: HYPERSENSITIVITY
     Dosage: 2 ONCE DAILY INHALED
     Route: 055
     Dates: start: 2000, end: 201507
  7. WELCHOL [Concomitant]
     Active Substance: COLESEVELAM HYDROCHLORIDE
  8. NASACORT [Concomitant]
     Active Substance: TRIAMCINOLONE ACETONIDE
  9. PATADAY 0-2 [Concomitant]
  10. BENICAR [Suspect]
     Active Substance: OLMESARTAN MEDOXOMIL
  11. ASPIRIN. [Concomitant]
     Active Substance: ASPIRIN
  12. HEARING AIDS [Concomitant]
  13. VITAMIN D [Concomitant]
     Active Substance: CHOLECALCIFEROL

REACTIONS (4)
  - Hypersensitivity [None]
  - Lip pruritus [None]
  - Product substitution issue [None]
  - Tongue pruritus [None]

NARRATIVE: CASE EVENT DATE: 201509
